FAERS Safety Report 7154340-6 (Version None)
Quarter: 2010Q4

REPORT INFORMATION
  Report Type: 
  Country: None (occurrence: None)
  Receive Date: 20101213
  Receipt Date: 20101208
  Transmission Date: 20110411
  Serious: Yes (Other)
  Sender: FDA-Public Use
  Company Number: FR-BAXTER-2010BH029693

PATIENT
  Age: 50 Year
  Sex: Female

DRUGS (3)
  1. CYCLOPHOSPHAMIDE [Suspect]
     Indication: BREAST CANCER
     Route: 042
     Dates: start: 20101019, end: 20101019
  2. TAXOTERE [Suspect]
     Indication: BREAST CANCER
     Route: 042
     Dates: start: 20101019, end: 20101019
  3. KYTRIL [Concomitant]
     Indication: CHEMOTHERAPY
     Route: 042
     Dates: start: 20101019, end: 20101019

REACTIONS (4)
  - ALOPECIA [None]
  - DERMATITIS BULLOUS [None]
  - ERYTHEMA [None]
  - SKIN EXFOLIATION [None]
